FAERS Safety Report 15699138 (Version 2)
Quarter: 2019Q2

REPORT INFORMATION
  Report Type: Spontaneous
  Country: US (occurrence: US)
  Receive Date: 20181207
  Receipt Date: 20190528
  Transmission Date: 20190711
  Serious: No
  Sender: FDA-Public Use
  Company Number: US-PFIZER INC-2018504410

PATIENT
  Age: 72 Year
  Sex: Female

DRUGS (7)
  1. AZO GANTANOL [Suspect]
     Active Substance: PHENAZOPYRIDINE HYDROCHLORIDE\SULFAMETHOXAZOLE
     Dosage: UNK
  2. DULOXETINE. [Suspect]
     Active Substance: DULOXETINE
     Dosage: UNK
  3. GANTANOL [Suspect]
     Active Substance: SULFAMETHOXAZOLE
     Dosage: UNK
  4. LISINOPRIL. [Suspect]
     Active Substance: LISINOPRIL
     Dosage: UNK
  5. NITROGLYCERIN. [Suspect]
     Active Substance: NITROGLYCERIN
     Dosage: UNK
  6. CEFADROXIL. [Suspect]
     Active Substance: CEFADROXIL
     Dosage: UNK
  7. SULFAMETHOXAZOLE [Suspect]
     Active Substance: SULFAMETHOXAZOLE
     Dosage: UNK

REACTIONS (1)
  - Drug hypersensitivity [Unknown]
